FAERS Safety Report 7472641-9 (Version None)
Quarter: 2011Q2

REPORT INFORMATION
  Report Type: 
  Country: None (occurrence: None)
  Receive Date: 20110511
  Receipt Date: 20110427
  Transmission Date: 20111010
  Serious: Yes (Hospitalization)
  Sender: FDA-Public Use
  Company Number: FR-JNJFOC-20110502788

PATIENT
  Sex: Female

DRUGS (7)
  1. LEPTICUR [Concomitant]
  2. SERESTA [Concomitant]
  3. STABLON [Suspect]
     Indication: PRODUCT USED FOR UNKNOWN INDICATION
     Route: 048
  4. IMOVANE [Concomitant]
  5. LOVENOX [Concomitant]
  6. ACETAMINOPHEN AND TRAMADOL HCL [Suspect]
     Indication: PRODUCT USED FOR UNKNOWN INDICATION
     Dosage: 37.5/325 MG
     Route: 048
  7. EXELON [Suspect]
     Indication: DEMENTIA ALZHEIMER'S TYPE
     Route: 062

REACTIONS (2)
  - CYTOLYTIC HEPATITIS [None]
  - CHOLESTASIS [None]
